FAERS Safety Report 23066730 (Version 1)
Quarter: 2023Q4

REPORT INFORMATION
  Report Type: Spontaneous
  Country: US (occurrence: US)
  Receive Date: 20231016
  Receipt Date: 20231016
  Transmission Date: 20240109
  Serious: Yes (Other)
  Sender: FDA-Public Use
  Company Number: US-BAXTER-2023BAX032793

PATIENT
  Age: 38 Year
  Sex: Male

DRUGS (1)
  1. SEVOFLURANE [Suspect]
     Active Substance: SEVOFLURANE
     Indication: General anaesthesia
     Dosage: UNK
     Route: 065

REACTIONS (8)
  - Hepatotoxicity [Unknown]
  - Drug-induced liver injury [Unknown]
  - Acute hepatic failure [Unknown]
  - Hypotension [Unknown]
  - Hyporesponsive to stimuli [Unknown]
  - Hypoglycaemia [Unknown]
  - Haemoglobin decreased [Unknown]
  - Metabolic acidosis [Unknown]
